FAERS Safety Report 23940762 (Version 1)
Quarter: 2024Q2

REPORT INFORMATION
  Report Type: Spontaneous
  Country: CA (occurrence: CA)
  Receive Date: 20240605
  Receipt Date: 20240605
  Transmission Date: 20240716
  Serious: Yes (Other)
  Sender: FDA-Public Use
  Company Number: CA-Accord-428338

PATIENT
  Age: 37 Year
  Sex: Female
  Weight: 96.3 kg

DRUGS (1)
  1. PACLITAXEL [Suspect]
     Active Substance: PACLITAXEL
     Indication: Product used for unknown indication

REACTIONS (9)
  - Flushing [Unknown]
  - Nausea [Unknown]
  - Chest discomfort [Unknown]
  - Pruritus [Not Recovered/Not Resolved]
  - Face oedema [Unknown]
  - Dyspnoea [Unknown]
  - Dizziness [Unknown]
  - Throat tightness [Not Recovered/Not Resolved]
  - Dysphonia [Not Recovered/Not Resolved]
